FAERS Safety Report 10481437 (Version 2)
Quarter: 2014Q4

REPORT INFORMATION
  Report Type: Spontaneous
  Country: US (occurrence: US)
  Receive Date: 20140929
  Receipt Date: 20141112
  Transmission Date: 20150528
  Serious: No
  Sender: FDA-Public Use
  Company Number: US-PFIZER INC-2014265604

PATIENT
  Age: 90 Year
  Sex: Male
  Weight: 79 kg

DRUGS (5)
  1. NITROSTAT [Suspect]
     Active Substance: NITROGLYCERIN
     Indication: ANGINA PECTORIS
     Dosage: 0.4 MG, AS NEEDED (MENTIONED AS SOMETIMES ONCE OR TWICE A DAY)
     Dates: start: 201210
  2. ATENOLOL. [Concomitant]
     Active Substance: ATENOLOL
     Dosage: UNK
  3. WARFARIN [Concomitant]
     Active Substance: WARFARIN
     Dosage: UNK
  4. FUROSEMIDE. [Concomitant]
     Active Substance: FUROSEMIDE
     Dosage: UNK
  5. NITROSTAT [Suspect]
     Active Substance: NITROGLYCERIN
     Dosage: UNK (0.4 MG)

REACTIONS (4)
  - Malaise [Unknown]
  - Paraesthesia [Unknown]
  - Drug ineffective [Unknown]
  - Dysgeusia [Unknown]
